FAERS Safety Report 11836687 (Version 1)
Quarter: 2015Q4

REPORT INFORMATION
  Report Type: Spontaneous
  Country: CO (occurrence: CO)
  Receive Date: 20151215
  Receipt Date: 20151215
  Transmission Date: 20160305
  Serious: Yes (Hospitalization)
  Sender: FDA-Public Use
  Company Number: CO-BIOGEN-2015BI074346

PATIENT
  Age: 44 Year
  Sex: Female

DRUGS (3)
  1. TYSABRI [Suspect]
     Active Substance: NATALIZUMAB
     Indication: MULTIPLE SCLEROSIS
     Route: 042
     Dates: start: 2011
  2. FAMPYRA [Concomitant]
     Active Substance: DALFAMPRIDINE
     Indication: GAIT DISTURBANCE
     Dates: start: 2012, end: 20151115
  3. FAMPYRA [Concomitant]
     Active Substance: DALFAMPRIDINE
     Dates: start: 20151123

REACTIONS (5)
  - Speech disorder [Recovered/Resolved]
  - Gait disturbance [Not Recovered/Not Resolved]
  - Blood potassium decreased [Recovered/Resolved]
  - Gastroenteritis [Recovered/Resolved]
  - Muscular weakness [Unknown]

NARRATIVE: CASE EVENT DATE: 201504
